FAERS Safety Report 7825465-4 (Version None)
Quarter: 2011Q4

REPORT INFORMATION
  Report Type: 
  Country: None (occurrence: None)
  Receive Date: 20111017
  Receipt Date: 20110927
  Transmission Date: 20120403
  Serious: Yes (Other)
  Sender: FDA-Public Use
  Company Number: AUR-APL-2011-05256

PATIENT
  Age: 42 Year
  Sex: Male

DRUGS (1)
  1. SIMVASTATIN [Suspect]
     Indication: DYSLIPIDAEMIA
     Dosage: (20 MG,1 D),ORAL
     Route: 048
     Dates: start: 20090501, end: 20110730

REACTIONS (1)
  - IRON DEFICIENCY ANAEMIA [None]
